FAERS Safety Report 18461413 (Version 1)
Quarter: 2020Q4

REPORT INFORMATION
  Report Type: Report from Study
  Country: US (occurrence: US)
  Receive Date: 20201104
  Receipt Date: 20201104
  Transmission Date: 20210114
  Serious: Yes (Death)
  Sender: FDA-Public Use
  Company Number: US-EMD SERONO-9195869

PATIENT
  Age: 65 Year
  Sex: Male

DRUGS (4)
  1. REBIF [Suspect]
     Active Substance: INTERFERON BETA-1A
     Dates: start: 20150504, end: 20170331
  2. REBIF [Suspect]
     Active Substance: INTERFERON BETA-1A
     Dates: start: 20140314, end: 20150116
  3. REBIF [Suspect]
     Active Substance: INTERFERON BETA-1A
     Route: 058
     Dates: start: 20170710, end: 20191215
  4. REBIF [Suspect]
     Active Substance: INTERFERON BETA-1A
     Indication: PRODUCT USED FOR UNKNOWN INDICATION
     Dates: start: 20110318, end: 20131206

REACTIONS (1)
  - Death [Fatal]

NARRATIVE: CASE EVENT DATE: 20201023
